FAERS Safety Report 10750724 (Version 1)
Quarter: 2015Q1

REPORT INFORMATION
  Report Type: Spontaneous
  Country: US (occurrence: None)
  Receive Date: 20150128
  Receipt Date: 20150128
  Transmission Date: 20150721
  Serious: Yes (Hospitalization)
  Sender: FDA-Public Use
  Company Number: 2014-US-016932

PATIENT
  Age: 69 Year
  Sex: Female

DRUGS (1)
  1. PRIALT [Suspect]
     Active Substance: ZICONOTIDE ACETATE
     Indication: SPINAL PAIN
     Route: 037
     Dates: start: 201412

REACTIONS (6)
  - Swelling [None]
  - Oedema [None]
  - Peripheral swelling [None]
  - Incision site complication [None]
  - Abdominal distension [None]
  - No therapeutic response [None]

NARRATIVE: CASE EVENT DATE: 20141212
